FAERS Safety Report 6529053-1 (Version None)
Quarter: 2009Q4

REPORT INFORMATION
  Report Type: 
  Country: None (occurrence: None)
  Receive Date: 20091224
  Receipt Date: 20091211
  Transmission Date: 20100525
  Serious: Yes (Other)
  Sender: FDA-Public Use
  Company Number: UY-JNJFOC-20091204328

PATIENT
  Age: 51 Year
  Sex: Female

DRUGS (2)
  1. DACOGEN [Suspect]
     Indication: MYELODYSPLASTIC SYNDROME
     Dosage: 45 MG/M2, IN 1 MONTH, INTRAVENOUS; 50 MG, IN 1 MONTH, INTRAVENOUS
     Dates: start: 20090501, end: 20091101
  2. DACOGEN [Suspect]
     Indication: MYELODYSPLASTIC SYNDROME
     Dosage: 45 MG/M2, IN 1 MONTH, INTRAVENOUS; 50 MG, IN 1 MONTH, INTRAVENOUS
     Dates: start: 20081010

REACTIONS (1)
  - POLYNEUROPATHY [None]
